FAERS Safety Report 8859958 (Version 1)
Quarter: 2012Q4

REPORT INFORMATION
  Report Type: 
  Country: PR (occurrence: PR)
  Receive Date: 20121025
  Receipt Date: 20121025
  Transmission Date: 20130627
  Serious: Yes (Other)
  Sender: FDA-Public Use
  Company Number: PR-ABBOTT-12P-131-0997495-00

PATIENT
  Age: 60 Year
  Sex: Male
  Weight: 62 kg

DRUGS (2)
  1. NIMBEX [Suspect]
     Indication: ANAESTHESIA
     Route: 065
  2. VERSED [Suspect]
     Indication: ANAESTHESIA
     Route: 065

REACTIONS (2)
  - Muscle rigidity [Recovered/Resolved]
  - Drug ineffective [Recovered/Resolved]
